FAERS Safety Report 9726886 (Version 2)
Quarter: 2013Q4

REPORT INFORMATION
  Report Type: Spontaneous
  Country: None (occurrence: US)
  Receive Date: 20131203
  Receipt Date: 20131203
  Transmission Date: 20140711
  Serious: No
  Sender: FDA-Public Use
  Company Number: US-NOVEN-13US006768

PATIENT
  Sex: Male

DRUGS (5)
  1. FENTANYL [Suspect]
     Indication: PAIN
     Dosage: 25 MCG/HR, Q 72 HOURS
     Route: 062
     Dates: start: 201304
  2. CLOPIDOGREL [Concomitant]
  3. LISINOPRIL [Concomitant]
  4. PRAVASTATIN [Concomitant]
     Dosage: 40 MG, UNK
  5. TOPROL [Concomitant]
     Dosage: 100 MG, UNK

REACTIONS (2)
  - Inadequate analgesia [Unknown]
  - Product quality issue [Unknown]
